FAERS Safety Report 5445775-8 (Version None)
Quarter: 2007Q3

REPORT INFORMATION
  Report Type: 
  Country: None (occurrence: None)
  Receive Date: 20070904
  Receipt Date: 20070823
  Transmission Date: 20080115
  Serious: Yes (Hospitalization)
  Sender: FDA-Public Use
  Company Number: CHNY2007BR02944

PATIENT
  Age: 3 Year
  Sex: Male

DRUGS (8)
  1. BENEFIBER (NCH)(GUAR GUM) POWDER [Suspect]
     Indication: CONSTIPATION
     Dosage: ORAL
     Route: 048
  2. MULTILIUM [Concomitant]
  3. LAMICTAL [Concomitant]
  4. OMEPRAZOLE [Concomitant]
  5. LOSEC MUPS (OMEPRAZOLE MAGNESIUM) [Concomitant]
  6. VALPROATE SODIUM [Concomitant]
  7. SONO BOM [Concomitant]
  8. TOPAMAX [Concomitant]

REACTIONS (2)
  - DRUG INEFFECTIVE [None]
  - PNEUMONIA [None]
